FAERS Safety Report 18968415 (Version 2)
Quarter: 2021Q2

REPORT INFORMATION
  Report Type: Spontaneous
  Country: IE (occurrence: IE)
  Receive Date: 20210304
  Receipt Date: 20210525
  Transmission Date: 20210717
  Serious: Yes (Other)
  Sender: FDA-Public Use
  Company Number: IE-BAUSCH-BL-2021-006208

PATIENT
  Age: 5 Year
  Sex: Male

DRUGS (8)
  1. DEXAMETHASONE. [Suspect]
     Active Substance: DEXAMETHASONE
     Indication: B PRECURSOR TYPE ACUTE LEUKAEMIA
     Dosage: CYCLICAL, UKALL 2011 PROTOCOL REGIMEN A
     Route: 065
     Dates: start: 2013, end: 2016
  2. METHOTREXATE. [Suspect]
     Active Substance: METHOTREXATE
     Indication: B PRECURSOR TYPE ACUTE LEUKAEMIA
     Dosage: CYCLICAL, UKALL 2011 PROTOCOL REGIMEN A
     Route: 065
     Dates: start: 2013, end: 2016
  3. VINCRISTINE [Suspect]
     Active Substance: VINCRISTINE
     Indication: B PRECURSOR TYPE ACUTE LEUKAEMIA
     Dosage: CYCLICAL, UKALL 2011 PROTOCOL REGIMEN A
     Route: 065
     Dates: start: 2013, end: 2016
  4. CYCLOPHOSPHAMIDE. [Suspect]
     Active Substance: CYCLOPHOSPHAMIDE
     Indication: B PRECURSOR TYPE ACUTE LEUKAEMIA
     Dosage: CYCLICAL, UKALL 2011 PROTOCOL REGIMEN A
     Route: 065
     Dates: start: 2013, end: 2016
  5. MERCAPTOPURINE. [Suspect]
     Active Substance: MERCAPTOPURINE
     Indication: B PRECURSOR TYPE ACUTE LEUKAEMIA
     Dosage: CYCLICAL, UKALL 2011 PROTOCOL REGIMEN A
     Route: 065
     Dates: start: 2013, end: 2016
  6. CYTARABINE. [Suspect]
     Active Substance: CYTARABINE
     Indication: B PRECURSOR TYPE ACUTE LEUKAEMIA
     Dosage: CYCLICAL, UKALL 2011 PROTOCOL REGIMEN A
     Route: 065
     Dates: start: 2013, end: 2016
  7. PEGASPARGASE [Suspect]
     Active Substance: PEGASPARGASE
     Indication: B PRECURSOR TYPE ACUTE LEUKAEMIA
     Dosage: CYCLICAL, UKALL 2011 PROTOCOL REGIMEN A
     Route: 065
     Dates: start: 2013, end: 2016
  8. DOXORUBICIN [Suspect]
     Active Substance: DOXORUBICIN
     Indication: B PRECURSOR TYPE ACUTE LEUKAEMIA
     Dosage: CYCLICAL, UKALL 2011 PROTOCOL REGIMEN A
     Route: 065
     Dates: start: 2013, end: 2016

REACTIONS (1)
  - Lentigo [Unknown]

NARRATIVE: CASE EVENT DATE: 2016
